FAERS Safety Report 11651563 (Version 1)
Quarter: 2015Q4

REPORT INFORMATION
  Report Type: Spontaneous
  Country: US (occurrence: None)
  Receive Date: 20151021
  Receipt Date: 20151021
  Transmission Date: 20160304
  Serious: No
  Sender: FDA-Public Use
  Company Number: None

PATIENT
  Age: 60 Year
  Sex: Female

DRUGS (13)
  1. CYCLOBENZAPR [Concomitant]
  2. MULTI-DAY VITAMINS [Concomitant]
     Active Substance: VITAMINS
  3. THIAMINE HCL [Concomitant]
  4. DRAMAMINE [Concomitant]
     Active Substance: DIMENHYDRINATE
  5. FOLIC ACID. [Concomitant]
     Active Substance: FOLIC ACID
  6. OXYCODONE [Concomitant]
     Active Substance: OXYCODONE
  7. AMBIEN [Concomitant]
     Active Substance: ZOLPIDEM TARTRATE
  8. TEA [Concomitant]
     Active Substance: TEA LEAF
  9. SUTENT [Suspect]
     Active Substance: SUNITINIB MALATE
     Indication: PANCREATIC CARCINOMA
     Route: 048
     Dates: start: 20150728
  10. ALPRAZOLAM. [Concomitant]
     Active Substance: ALPRAZOLAM
  11. OMEPRAZOLE. [Concomitant]
     Active Substance: OMEPRAZOLE
  12. LORAZEPAM. [Concomitant]
     Active Substance: LORAZEPAM
  13. TORESMIDE [Concomitant]

REACTIONS (1)
  - Epistaxis [None]

NARRATIVE: CASE EVENT DATE: 20151005
